FAERS Safety Report 19021680 (Version 1)
Quarter: 2021Q1

REPORT INFORMATION
  Report Type: Spontaneous
  Country: US (occurrence: US)
  Receive Date: 20210318
  Receipt Date: 20210318
  Transmission Date: 20210420
  Serious: No
  Sender: FDA-Public Use
  Company Number: US-009507513-2103USA000740

PATIENT
  Sex: Female

DRUGS (4)
  1. NOXAFIL [Suspect]
     Active Substance: POSACONAZOLE
     Indication: MENINGITIS COCCIDIOIDES
     Dosage: 300 MG DAILY
     Route: 048
     Dates: start: 20161007
  2. AMPHOTERICIN B. [Concomitant]
     Active Substance: AMPHOTERICIN B
     Dosage: 5 MILLIGRAM/KILOGRAM, THREE TIMES WEEKLY
     Route: 042
     Dates: start: 20161007, end: 201708
  3. AMPHOTERICIN B. [Concomitant]
     Active Substance: AMPHOTERICIN B
     Dosage: CHANGED TO TWICE WEEKLY, TOTAL 15 MONTHS
     Route: 042
     Dates: end: 201812
  4. AMPHOTERICIN B. [Concomitant]
     Active Substance: AMPHOTERICIN B
     Dosage: THREE TIMES WEEKLY INITIALLY, TOTAL 15 MONTHS
     Route: 042
     Dates: start: 20170926

REACTIONS (3)
  - Product use issue [Unknown]
  - Product administered to patient of inappropriate age [Unknown]
  - Product use in unapproved indication [Unknown]

NARRATIVE: CASE EVENT DATE: 20161007
